FAERS Safety Report 15675359 (Version 3)
Quarter: 2019Q4

REPORT INFORMATION
  Report Type: Spontaneous
  Country: DE (occurrence: DE)
  Receive Date: 20181130
  Receipt Date: 20191217
  Transmission Date: 20200122
  Serious: Yes (Other)
  Sender: FDA-Public Use
  Company Number: DE-ALKEM LABORATORIES LIMITED-DE-ALKEM-2018-09630

PATIENT
  Age: 69 Year
  Sex: Male

DRUGS (1)
  1. OLANZAPINE. [Suspect]
     Active Substance: OLANZAPINE
     Indication: SCHIZOPHRENIFORM DISORDER
     Dosage: 5 MG, SINGLE DOSE
     Route: 065

REACTIONS (2)
  - Atrioventricular block complete [Unknown]
  - Hypothermia [Recovered/Resolved]
